FAERS Safety Report 8314771-5 (Version None)
Quarter: 2012Q2

REPORT INFORMATION
  Report Type: 
  Country: None (occurrence: None)
  Receive Date: 20120426
  Receipt Date: 20120419
  Transmission Date: 20120825
  Serious: Yes (Other)
  Sender: FDA-Public Use
  Company Number: PHHY2011CA76775

PATIENT
  Sex: Female

DRUGS (16)
  1. TYLENOL (CAPLET) [Concomitant]
     Dosage: UNK UKN, UNK
  2. VITAMIN D [Concomitant]
     Dosage: 2 DF, QD
     Dates: start: 20101216
  3. GILENYA [Suspect]
     Dosage: 0.5 MG, DAILY
     Route: 048
     Dates: start: 20120124, end: 20120408
  4. ZOPLICONE [Concomitant]
     Indication: INSOMNIA
     Dosage: 1 DF, 30 MINUTES BEFORE BEDTIME
     Dates: start: 20101221
  5. ASPIRIN [Concomitant]
     Dosage: UNK UKN, UNK
  6. ASPIRIN [Concomitant]
     Dosage: 1 DF, QD
     Dates: start: 20100903
  7. GILENYA [Suspect]
     Indication: RELAPSING-REMITTING MULTIPLE SCLEROSIS
     Dosage: 0.5 MG, DAILY
     Route: 048
     Dates: start: 20110811, end: 20110918
  8. WELLBUTRIN XL [Concomitant]
     Dosage: 1 DF, QD
     Dates: start: 20110315
  9. TRAMADOL/ACET [Concomitant]
     Dosage: 2 DF, Q96H
     Dates: start: 20110825
  10. CLONAZEPAM [Concomitant]
     Indication: INSOMNIA
     Dosage: 1 DF, QD PRN
  11. AMANTADINE HCL [Concomitant]
     Dosage: UNK UKN, UNK
  12. FLURAZEPAM [Concomitant]
     Indication: INSOMNIA
     Dosage: 2 DF,BEFORE BED TIME
     Dates: start: 20110117
  13. IBUPROFEN (ADVIL) [Concomitant]
     Dosage: UNK UKN, PRN
  14. OPTION ACETA [Concomitant]
     Dosage: 1 DF, Q4-6H
     Dates: start: 20110911
  15. BACLOFEN [Concomitant]
     Dosage: 1 DF, QD
     Dates: start: 20110204
  16. CLONAZEPAM [Concomitant]
     Indication: ANXIETY

REACTIONS (19)
  - FEELING COLD [None]
  - VIRAL UPPER RESPIRATORY TRACT INFECTION [None]
  - SINUSITIS [None]
  - DRUG INTOLERANCE [None]
  - DIARRHOEA [None]
  - PHOTOPHOBIA [None]
  - FATIGUE [None]
  - VISION BLURRED [None]
  - ABDOMINAL PAIN [None]
  - VOMITING [None]
  - LYMPHOPENIA [None]
  - EYE PAIN [None]
  - CHEST DISCOMFORT [None]
  - HYPOAESTHESIA [None]
  - NAUSEA [None]
  - COUGH [None]
  - NASOPHARYNGITIS [None]
  - HEADACHE [None]
  - EYE IRRITATION [None]
